FAERS Safety Report 25990475 (Version 1)
Quarter: 2025Q4

REPORT INFORMATION
  Report Type: Spontaneous
  Country: US (occurrence: US)
  Receive Date: 20251103
  Receipt Date: 20251103
  Transmission Date: 20260118
  Serious: No
  Sender: BAYER HEALTHCARE LLC
  Company Number: US-BAYER-2025A145070

PATIENT
  Sex: Female

DRUGS (1)
  1. MIRALAX [Suspect]
     Active Substance: POLYETHYLENE GLYCOL 3350
     Indication: Colonoscopy
     Dosage: 12 CAPS OF MIRALAX AND 28 OZ OF GATORADE
     Route: 048

REACTIONS (2)
  - Product use in unapproved indication [Unknown]
  - Diarrhoea [Unknown]
